FAERS Safety Report 9165665 (Version 1)
Quarter: 2013Q1

REPORT INFORMATION
  Report Type: Report from Study
  Country: US (occurrence: US)
  Receive Date: 20130315
  Receipt Date: 20130315
  Transmission Date: 20140127
  Serious: Yes (Hospitalization)
  Sender: FDA-Public Use
  Company Number: US-ABBOTT-13P-163-1060817-00

PATIENT
  Sex: Male
  Weight: 108.96 kg

DRUGS (1)
  1. HUMIRA [Suspect]
     Indication: PSORIATIC ARTHROPATHY
     Dates: start: 2009, end: 2009

REACTIONS (4)
  - Infection [Recovered/Resolved]
  - Rash macular [Recovered/Resolved]
  - Skin discolouration [Recovered/Resolved]
  - Yellow skin [Recovered/Resolved]
